FAERS Safety Report 15318615 (Version 2)
Quarter: 2018Q4

REPORT INFORMATION
  Report Type: Spontaneous
  Country: US (occurrence: US)
  Receive Date: 20180825
  Receipt Date: 20180928
  Transmission Date: 20190204
  Serious: No
  Sender: FDA-Public Use
  Company Number: US-TAIHO ONCOLOGY  INC-EU-2018-01219

PATIENT
  Age: 36 Year
  Sex: Female
  Weight: 48.58 kg

DRUGS (32)
  1. ABILIFY [Concomitant]
     Active Substance: ARIPIPRAZOLE
     Dosage: NI
  2. ALPRAZOLAM. [Concomitant]
     Active Substance: ALPRAZOLAM
     Dosage: NI
  3. AVASTIN [Concomitant]
     Active Substance: BEVACIZUMAB
     Dosage: NI
  4. CLONIDINE. [Concomitant]
     Active Substance: CLONIDINE
     Dosage: NI
  5. EMEND [Concomitant]
     Active Substance: APREPITANT
     Dosage: NI
  6. LONSURF [Suspect]
     Active Substance: TIPIRACIL HYDROCHLORIDE\TRIFLURIDINE
     Indication: COLON CANCER
     Dosage: CYCLE 4 STARTED ON 13JUN2018
     Route: 048
     Dates: start: 2018, end: 20180829
  7. IRINOTECAN [Concomitant]
     Active Substance: IRINOTECAN
     Dosage: NI
  8. ATIVAN [Concomitant]
     Active Substance: LORAZEPAM
     Dosage: NI
  9. TRANSDERM SCOP [Concomitant]
     Active Substance: SCOPOLAMINE
     Dosage: NI
  10. FAMOTIDINE. [Concomitant]
     Active Substance: FAMOTIDINE
     Dosage: NI
  11. HYDROMORPHONE [Concomitant]
     Active Substance: HYDROMORPHONE
     Dosage: NI
  12. LEUCOVORIN. [Concomitant]
     Active Substance: LEUCOVORIN
     Dosage: NI
  13. METOCLOPRAMIDE. [Concomitant]
     Active Substance: METOCLOPRAMIDE
     Dosage: NI
  14. NEUPOGEN [Concomitant]
     Active Substance: FILGRASTIM
     Dosage: NI
  15. TYLENOL [Concomitant]
     Active Substance: ACETAMINOPHEN
     Dosage: NI
  16. WELLBUTRIN [Concomitant]
     Active Substance: BUPROPION HYDROCHLORIDE
     Dosage: NI
  17. PROMETHAZINE [Concomitant]
     Active Substance: PROMETHAZINE\PROMETHAZINE HYDROCHLORIDE
     Dosage: NI
  18. APAP [Concomitant]
     Active Substance: ACETAMINOPHEN
     Dosage: NI
  19. BENADRYL [Concomitant]
     Active Substance: DIPHENHYDRAMINE HYDROCHLORIDE
     Dosage: NI
  20. HYDRALAZINE [Concomitant]
     Active Substance: HYDRALAZINE HYDROCHLORIDE
     Dosage: NI
  21. ONDANSETRON [Concomitant]
     Active Substance: ONDANSETRON
     Dosage: NI
  22. SENOKOT [Concomitant]
     Active Substance: SENNOSIDES
     Dosage: NI
  23. LOMOTIL [Concomitant]
     Active Substance: ATROPINE SULFATE\DIPHENOXYLATE HYDROCHLORIDE
     Dosage: NI
  24. LORATADINE. [Concomitant]
     Active Substance: LORATADINE
     Dosage: NI
  25. PROTONIX [Concomitant]
     Active Substance: PANTOPRAZOLE SODIUM
     Dosage: NI
  26. AMLODIPINE [Concomitant]
     Active Substance: AMLODIPINE BESYLATE
     Dosage: NI
  27. ATROPINE. [Concomitant]
     Active Substance: ATROPINE
     Dosage: NI
  28. LISINOPRIL. [Concomitant]
     Active Substance: LISINOPRIL
     Dosage: NI
  29. LOPERAMIDE [Concomitant]
     Active Substance: LOPERAMIDE
     Dosage: NI
  30. OXALIPLATIN. [Concomitant]
     Active Substance: OXALIPLATIN
     Dosage: NI
  31. PROCHLORPERAZINE. [Concomitant]
     Active Substance: PROCHLORPERAZINE
     Dosage: NI
  32. SANDOSTATIN [Concomitant]
     Active Substance: OCTREOTIDE ACETATE
     Dosage: NI

REACTIONS (4)
  - Vomiting [Unknown]
  - Fatigue [Unknown]
  - Nausea [Unknown]
  - Disease progression [Unknown]

NARRATIVE: CASE EVENT DATE: 2018
